FAERS Safety Report 5114463-X (Version None)
Quarter: 2006Q3

REPORT INFORMATION
  Report Type: 
  Country: None (occurrence: None)
  Receive Date: 20060802
  Receipt Date: 20060628
  Transmission Date: 20061208
  Serious: No
  Sender: FDA-Public Use
  Company Number: 200612399US

PATIENT
  Age: 69 Year
  Sex: Male

DRUGS (4)
  1. KETEK [Suspect]
     Indication: SINUSITIS
     Dosage: 400 MG QD PO
     Route: 048
     Dates: start: 20060310, end: 20060314
  2. KETEK [Suspect]
     Indication: TOOTH ABSCESS
     Dosage: 400 MG QD PO
     Route: 048
     Dates: start: 20060310, end: 20060314
  3. HYDROCHLOROTHIAZIDE [Concomitant]
  4. UNSPECIFIED ANTIBIOTIC [Concomitant]

REACTIONS (2)
  - DRUG INEFFECTIVE [None]
  - PAIN [None]
